FAERS Safety Report 21149775 (Version 1)
Quarter: 2022Q3

REPORT INFORMATION
  Report Type: Spontaneous
  Country: US (occurrence: None)
  Receive Date: 20220729
  Receipt Date: 20220729
  Transmission Date: 20221026
  Serious: Yes (Hospitalization)
  Sender: FDA-Public Use
  Company Number: None

PATIENT
  Age: 42 Year
  Sex: Female

DRUGS (1)
  1. CITROMA [Suspect]
     Active Substance: MAGNESIUM CITRATE
     Indication: Constipation
     Dosage: OTHER QUANTITY : 1 10 OZ;?FREQUENCY : DAILY;?
     Route: 048
     Dates: start: 20220722, end: 20220722

REACTIONS (2)
  - Gastric disorder [None]
  - Therapeutic product effect incomplete [None]

NARRATIVE: CASE EVENT DATE: 20220422
